FAERS Safety Report 9508863 (Version 1)
Quarter: 2013Q1

REPORT INFORMATION
  Report Type: Spontaneous
  Country: US (occurrence: None)
  Receive Date: 20130305
  Receipt Date: 20130305
  Transmission Date: 20140127
  Serious: No
  Sender: FDA-Public Use
  Company Number: 163-21880-12090516

PATIENT
  Age: 72 Year
  Sex: Female
  Weight: 73.48 kg

DRUGS (15)
  1. REVLIMID (LENALIDOMIDE) (CAPSULES) [Suspect]
     Indication: PLASMA CELL MYELOMA
     Dosage: 5MG, 21 IN 21 D, PO
     Route: 048
     Dates: start: 20100601
  2. COREG (CARVEDILOL) [Concomitant]
  3. DEXAMETHASONE (DEXAMETHASONE) [Concomitant]
  4. DORZOL/TIMOL (COSOPT) [Concomitant]
  5. DRONABINOL [Concomitant]
  6. LIVALO (ITAVASTATIN CALCIUM) [Concomitant]
  7. MAGNESIUM (MAGNESIUM) [Concomitant]
  8. VITAMINS [Concomitant]
  9. OMEPRAZOLE (OMEPRAZOLE) [Concomitant]
  10. ONDANSETRON (ONDANSETRON) [Concomitant]
  11. PLAVIX (CLOPIDOGREL SULFATE) [Concomitant]
  12. POTASSIUM (POTASSIUM) [Concomitant]
  13. VALTREX (VALACICLOVIR HYDROCHLORIDE) [Concomitant]
  14. VITAMIN D (ERGOCALCIFEROL) [Concomitant]
  15. VITAMIN E (TOCOPHEROL) [Concomitant]

REACTIONS (1)
  - Light chain analysis increased [None]
